FAERS Safety Report 15792502 (Version 2)
Quarter: 2019Q1

REPORT INFORMATION
  Report Type: Spontaneous
  Country: BR (occurrence: BR)
  Receive Date: 20190107
  Receipt Date: 20190313
  Transmission Date: 20190417
  Serious: Yes (Hospitalization)
  Sender: FDA-Public Use
  Company Number: BR-ROCHE-2239279

PATIENT
  Age: 77 Year
  Sex: Female

DRUGS (6)
  1. RIVOTRIL [Suspect]
     Active Substance: CLONAZEPAM
     Indication: INSOMNIA
     Dosage: AT NIGHT
     Route: 065
     Dates: start: 2015
  2. ATORVASTATIN [Concomitant]
     Active Substance: ATORVASTATIN
     Route: 065
  3. VASTAREL [Concomitant]
     Active Substance: TRIMETAZIDINE DIHYDROCHLORIDE
  4. RIVOTRIL [Suspect]
     Active Substance: CLONAZEPAM
     Indication: NERVOUSNESS
  5. RIVOTRIL [Suspect]
     Active Substance: CLONAZEPAM
     Indication: ANXIETY
  6. LEXOTAN [Suspect]
     Active Substance: BROMAZEPAM
     Indication: ANXIETY
     Route: 065

REACTIONS (10)
  - Memory impairment [Not Recovered/Not Resolved]
  - Restlessness [Recovered/Resolved]
  - Thyroid mass [Unknown]
  - Intentional product use issue [Unknown]
  - Pain [Recovered/Resolved]
  - Off label use [Unknown]
  - Vein rupture [Unknown]
  - Nervousness [Recovered/Resolved]
  - Fall [Unknown]
  - Psychiatric symptom [Recovered/Resolved]
